FAERS Safety Report 16065232 (Version 2)
Quarter: 2019Q2

REPORT INFORMATION
  Report Type: Spontaneous
  Country: US (occurrence: US)
  Receive Date: 20190313
  Receipt Date: 20190411
  Transmission Date: 20190711
  Serious: Yes (Hospitalization)
  Sender: FDA-Public Use
  Company Number: US-ROCHE-2279497

PATIENT
  Age: 69 Year
  Sex: Female
  Weight: 48.58 kg

DRUGS (12)
  1. RITUXAN [Suspect]
     Active Substance: RITUXIMAB
     Indication: PEMPHIGUS
     Dosage: 2 DOSES ONLY
     Route: 042
     Dates: start: 20181025
  2. TYLENOL [Concomitant]
     Active Substance: ACETAMINOPHEN
     Indication: PREMEDICATION
     Route: 065
     Dates: start: 20181025
  3. LOSARTAN. [Concomitant]
     Active Substance: LOSARTAN
     Indication: HYPERTENSION
     Route: 048
     Dates: start: 201809
  4. METOPROLOL. [Concomitant]
     Active Substance: METOPROLOL
     Route: 042
     Dates: start: 20181110
  5. ELIQUIS [Concomitant]
     Active Substance: APIXABAN
     Route: 048
     Dates: start: 20181109
  6. VANTIN (CEFPODOXIME) [Concomitant]
  7. ATORVASTATIN [Suspect]
     Active Substance: ATORVASTATIN
     Indication: BLOOD CHOLESTEROL INCREASED
     Route: 065
     Dates: start: 201810, end: 201902
  8. METOPROLOL. [Concomitant]
     Active Substance: METOPROLOL
     Route: 042
     Dates: start: 20181109
  9. RITUXAN [Suspect]
     Active Substance: RITUXIMAB
     Dosage: 2 DOSES ONLY
     Route: 042
     Dates: start: 20181108
  10. BENADRYL [Concomitant]
     Active Substance: DIPHENHYDRAMINE HYDROCHLORIDE
     Indication: PREMEDICATION
     Route: 065
     Dates: start: 20181025
  11. BENADRYL [Concomitant]
     Active Substance: DIPHENHYDRAMINE HYDROCHLORIDE
     Route: 042
     Dates: start: 20181108
  12. ENALAPRIL [Concomitant]
     Active Substance: ENALAPRIL
     Dosage: STARTED 3 TO 4 YEARS AGO
     Route: 048
     Dates: end: 201809

REACTIONS (5)
  - Myalgia [Recovering/Resolving]
  - Pollakiuria [Recovered/Resolved]
  - Atrial fibrillation [Recovered/Resolved]
  - Oral pruritus [Recovered/Resolved]
  - Insomnia [Recovered/Resolved]

NARRATIVE: CASE EVENT DATE: 20181025
